FAERS Safety Report 7382331-9 (Version None)
Quarter: 2011Q1

REPORT INFORMATION
  Report Type: 
  Country: None (occurrence: None)
  Receive Date: 20110329
  Receipt Date: 20110222
  Transmission Date: 20110831
  Serious: Yes (Hospitalization, Other)
  Sender: FDA-Public Use
  Company Number: US-BAYER-201039903NA

PATIENT
  Sex: Female
  Weight: 52.154 kg

DRUGS (7)
  1. YAZ [Suspect]
     Indication: MENSTRUAL CYCLE MANAGEMENT
  2. YAZ [Suspect]
     Indication: CONTRACEPTION
     Route: 048
     Dates: start: 20081101, end: 20090301
  3. OCELLA [Suspect]
     Indication: CONTRACEPTION
     Route: 048
     Dates: start: 20081101, end: 20090301
  4. MOTRIN [Concomitant]
  5. OCELLA [Suspect]
     Indication: MENSTRUAL CYCLE MANAGEMENT
  6. LEVAQUIN [Concomitant]
     Indication: PYELONEPHRITIS
     Dosage: UNK
     Dates: start: 20090219
  7. NECON [Concomitant]

REACTIONS (2)
  - BILIARY DYSKINESIA [None]
  - CHOLECYSTECTOMY [None]
